FAERS Safety Report 7090832-6 (Version None)
Quarter: 2010Q4

REPORT INFORMATION
  Report Type: 
  Country: None (occurrence: None)
  Receive Date: 20101012
  Receipt Date: 20100825
  Transmission Date: 20110411
  Serious: Yes (Other)
  Sender: FDA-Public Use
  Company Number: 017801

PATIENT
  Age: 50 Year
  Sex: Female

DRUGS (3)
  1. LEVETIRACETAM [Suspect]
     Indication: CONVULSION
  2. LAMICTAL [Suspect]
     Indication: CONVULSION
     Dosage: (ORAL)
     Route: 048
  3. ADVAIR HFA [Suspect]
     Indication: ASTHMA
     Dates: start: 20000101

REACTIONS (2)
  - CONVULSION [None]
  - GRAND MAL CONVULSION [None]
